FAERS Safety Report 4944984-1 (Version None)
Quarter: 2006Q1

REPORT INFORMATION
  Report Type: 
  Country: None (occurrence: None)
  Receive Date: 20060117
  Receipt Date: 20050509
  Transmission Date: 20060701
  Serious: Yes (Other)
  Sender: FDA-Public Use
  Company Number: A03200501377

PATIENT
  Age: 68 Year
  Sex: Male
  Weight: 113.3993 kg

DRUGS (6)
  1. PLAVIX [Suspect]
     Indication: ANGIOPLASTY
     Dosage: 75 MG QD - ORAL  A FEW YEARS
     Route: 048
     Dates: end: 20050426
  2. PLAVIX [Suspect]
     Indication: MYOCARDIAL INFARCTION
     Dosage: 75 MG QD - ORAL  A FEW YEARS
     Route: 048
     Dates: end: 20050426
  3. PLAVIX [Suspect]
     Indication: PROPHYLAXIS
     Dosage: 75 MG QD - ORAL  A FEW YEARS
     Route: 048
     Dates: end: 20050426
  4. PLAVIX [Suspect]
     Indication: TRANSIENT ISCHAEMIC ATTACK
     Dosage: 75 MG QD - ORAL  A FEW YEARS
     Route: 048
     Dates: end: 20050426
  5. ACETYLSALICYLIC ACID SRT [Concomitant]
  6. DIPYRIDAMOLE [Concomitant]

REACTIONS (1)
  - PLATELET COUNT DECREASED [None]
